FAERS Safety Report 16100055 (Version 2)
Quarter: 2019Q1

REPORT INFORMATION
  Report Type: Report from Study
  Country: FR (occurrence: FR)
  Receive Date: 20190321
  Receipt Date: 20190322
  Transmission Date: 20190418
  Serious: Yes (Hospitalization)
  Sender: FDA-Public Use
  Company Number: FR-JNJFOC-20190322945

PATIENT
  Age: 46 Year
  Sex: Female

DRUGS (24)
  1. VALIUM [Concomitant]
     Active Substance: DIAZEPAM
     Route: 065
     Dates: start: 20170824, end: 20190308
  2. FLAMMAZINE [Concomitant]
     Active Substance: SILVER SULFADIAZINE
     Route: 065
     Dates: end: 2018
  3. ZOLPIDEM [Concomitant]
     Active Substance: ZOLPIDEM\ZOLPIDEM TARTRATE
     Route: 065
     Dates: start: 2019
  4. DIFFU K [Concomitant]
     Active Substance: POTASSIUM CHLORIDE
     Route: 065
     Dates: start: 20170824, end: 20190308
  5. MAGNESIUM CARBONATE [Concomitant]
     Active Substance: MAGNESIUM CARBONATE
     Route: 065
     Dates: start: 20180716, end: 20181123
  6. VALIUM [Concomitant]
     Active Substance: DIAZEPAM
     Route: 065
  7. BACLOFENE [Concomitant]
     Active Substance: BACLOFEN
     Route: 065
     Dates: start: 20180201, end: 2018
  8. CIPROFLOXACIN. [Concomitant]
     Active Substance: CIPROFLOXACIN
     Route: 065
     Dates: start: 20180716, end: 20180805
  9. BIOTIN [Concomitant]
     Active Substance: BIOTIN
     Route: 065
     Dates: start: 20181123, end: 20190103
  10. REMICADE [Suspect]
     Active Substance: INFLIXIMAB
     Indication: PSORIASIS
     Route: 042
     Dates: start: 20170911, end: 20181005
  11. DIPROSONE [Concomitant]
     Active Substance: BETAMETHASONE DIPROPIONATE
     Route: 065
     Dates: end: 20190308
  12. REMICADE [Suspect]
     Active Substance: INFLIXIMAB
     Indication: PSORIASIS
     Route: 042
     Dates: start: 20171005, end: 20190111
  13. PRINCI B [Concomitant]
     Route: 065
     Dates: start: 20170824, end: 20190111
  14. PANTHENOL [Concomitant]
     Active Substance: PANTHENOL
     Route: 065
     Dates: start: 20181123, end: 20190103
  15. REMICADE [Suspect]
     Active Substance: INFLIXIMAB
     Indication: PSORIASIS
     Route: 042
     Dates: start: 20190111, end: 20190308
  16. ACITRETINE [Concomitant]
     Active Substance: ACITRETIN
     Route: 048
  17. ACIDE FOLIQUE [Concomitant]
     Active Substance: FOLIC ACID
     Route: 065
     Dates: start: 20170824, end: 20190111
  18. REMICADE [Suspect]
     Active Substance: INFLIXIMAB
     Indication: PSORIASIS
     Route: 042
     Dates: start: 20190308
  19. AMYCOR [Concomitant]
     Active Substance: BIFONAZOLE
     Route: 065
     Dates: start: 20180727, end: 20180816
  20. L-CYSTINE [Concomitant]
     Route: 065
     Dates: start: 20181005, end: 20190111
  21. NICORETTE [Concomitant]
     Active Substance: NICOTINE
     Route: 065
  22. PROZAC [Concomitant]
     Active Substance: FLUOXETINE HYDROCHLORIDE
     Route: 065
     Dates: end: 2018
  23. DIPROSALIC [Concomitant]
     Active Substance: BETAMETHASONE DIPROPIONATE
     Route: 065
     Dates: start: 20170824, end: 20171218
  24. NICORETTE [Concomitant]
     Active Substance: NICOTINE
     Route: 065
     Dates: start: 201901, end: 20190308

REACTIONS (5)
  - Off label use [Unknown]
  - Pneumonia legionella [Recovered/Resolved]
  - Injury [Recovered/Resolved]
  - Facial bones fracture [Recovered/Resolved]
  - Product use issue [Unknown]

NARRATIVE: CASE EVENT DATE: 20170911
